FAERS Safety Report 24637699 (Version 4)
Quarter: 2024Q4

REPORT INFORMATION
  Report Type: Spontaneous
  Country: US (occurrence: US)
  Receive Date: 20241119
  Receipt Date: 20241227
  Transmission Date: 20250114
  Serious: No
  Sender: PFIZER
  Company Number: US-PFIZER INC-202400301193

PATIENT
  Age: 76 Year
  Sex: Female
  Weight: 70.023 kg

DRUGS (2)
  1. LORBRENA [Suspect]
     Active Substance: LORLATINIB
     Indication: Iron deficiency anaemia
     Dosage: 100 MG, DAILY (TAKE 1 TAB BY MOUTH DAILY. ADMINISTER WITH OR WITHOUT FOOD ONCE DAILY)
     Route: 048
  2. XANAX [Concomitant]
     Active Substance: ALPRAZOLAM
     Dosage: 0.25 MG, AS NEEDED

REACTIONS (2)
  - Diarrhoea [Unknown]
  - Off label use [Unknown]
